FAERS Safety Report 9613225 (Version 1)
Quarter: 2013Q4

REPORT INFORMATION
  Report Type: Spontaneous
  Country: US (occurrence: US)
  Receive Date: 20131010
  Receipt Date: 20131010
  Transmission Date: 20140711
  Serious: Yes (Other)
  Sender: FDA-Public Use
  Company Number: US-GLAXOSMITHKLINE-A1044806A

PATIENT
  Age: 34 Year
  Sex: Female
  Weight: 158 kg

DRUGS (1)
  1. AVANDIA [Suspect]
     Indication: DIABETES MELLITUS
     Dosage: 4MG PER DAY
     Route: 048

REACTIONS (4)
  - Myocardial infarction [Unknown]
  - Chronic obstructive pulmonary disease [Unknown]
  - Cardiac failure congestive [Unknown]
  - Coronary artery disease [Unknown]
